FAERS Safety Report 6572275-4 (Version None)
Quarter: 2010Q1

REPORT INFORMATION
  Report Type: 
  Country: None (occurrence: None)
  Receive Date: 20100205
  Receipt Date: 20100202
  Transmission Date: 20100710
  Serious: Yes (Death, Other)
  Sender: FDA-Public Use
  Company Number: PHHO2009BR14518

PATIENT
  Sex: Male
  Weight: 71 kg

DRUGS (1)
  1. TASIGNA [Suspect]
     Indication: CHRONIC MYELOID LEUKAEMIA
     Dosage: 400 MG BID
     Route: 048
     Dates: start: 20070524, end: 20091113

REACTIONS (3)
  - HYPERTENSION [None]
  - MALAISE [None]
  - SUDDEN DEATH [None]
